FAERS Safety Report 7469583-1 (Version None)
Quarter: 2011Q2

REPORT INFORMATION
  Report Type: 
  Country: None (occurrence: None)
  Receive Date: 20110429
  Receipt Date: 20110413
  Transmission Date: 20111010
  Serious: Yes (Hospitalization, Other)
  Sender: FDA-Public Use
  Company Number: 1000017303

PATIENT
  Age: 85 Year
  Sex: Female
  Weight: 67 kg

DRUGS (13)
  1. SERESTA (OXAZEPAM) ( OXAZEPAM) [Concomitant]
  2. ZAMUDOL ( TRAMADOL HYDROCHLORIDE) ( TRAMADOL HYDROCHLORIDE) [Concomitant]
  3. CALIC D3 (CALCIUM, VITAMIN D3) (CALCIUM, VITAMIN D3) [Concomitant]
  4. LANSOR (LANSOPRAZOLE) (LANSOPRAZOLE) [Concomitant]
  5. SECTRAL(ACEBUTOLOL HYDROCHLORIDE) (ACEBUTOLOL HYDROCHLORIDE) [Concomitant]
  6. FUROSEMIDE [Concomitant]
  7. EXELON [Concomitant]
  8. ALPRAZOLAM [Concomitant]
  9. DIFFU K(POTASSIUM CHLORIDE)(POTASSIUM CHLORIDE) [Concomitant]
  10. THERALENE (ALIMEMAZINE TARTRATE) (ALIMEMAZINE TARTRATE) [Concomitant]
  11. MEMANTINE [Suspect]
     Indication: DEMENTIA ALZHEIMER'S TYPE
     Dosage: 10 MG (10 MG,1 IN 1 D)
     Dates: start: 20100607, end: 20101015
  12. KARDEGIC (ACETYLSALICYLATE LYSINE) (ACETYLSALICYLATE LYSINE) [Concomitant]
  13. RISPERDAL [Concomitant]

REACTIONS (19)
  - MENTAL DISORDER [None]
  - PARADOXICAL DRUG REACTION [None]
  - PERSECUTORY DELUSION [None]
  - DIET REFUSAL [None]
  - SLEEP DISORDER [None]
  - VERTIGO [None]
  - FRONTOTEMPORAL DEMENTIA [None]
  - AGITATION [None]
  - RESTLESSNESS [None]
  - REPETITIVE SPEECH [None]
  - UNEVALUABLE EVENT [None]
  - DELIRIUM [None]
  - MANIA [None]
  - ABNORMAL BEHAVIOUR [None]
  - ANXIETY [None]
  - PSYCHOTIC DISORDER [None]
  - CONFUSIONAL STATE [None]
  - INSOMNIA [None]
  - DISORIENTATION [None]
